FAERS Safety Report 4336548-8 (Version None)
Quarter: 2004Q2

REPORT INFORMATION
  Report Type: 
  Country: None (occurrence: None)
  Receive Date: 20040407
  Receipt Date: 20040322
  Transmission Date: 20050107
  Serious: Yes (Other)
  Sender: FDA-Public Use
  Company Number: USA040361293

PATIENT
  Age: 81 Year
  Sex: Female
  Weight: 54 kg

DRUGS (8)
  1. FORTEO [Suspect]
     Dosage: 20 UG
     Dates: start: 20030801
  2. ETODOLAC [Concomitant]
  3. XANAX [Concomitant]
  4. LEVOTHYROXINE SODIUM [Concomitant]
  5. BUPROPION HYDROCHLORIDE [Concomitant]
  6. PAROXETINE HCL [Concomitant]
  7. CALCIUM [Concomitant]
  8. VITAMIN D [Concomitant]

REACTIONS (11)
  - CONTUSION [None]
  - DEVICE FAILURE [None]
  - DYSSTASIA [None]
  - FALL [None]
  - INCISION SITE HAEMORRHAGE [None]
  - JOINT INJURY [None]
  - JOINT SPRAIN [None]
  - LIMB INJURY [None]
  - PAIN [None]
  - PHARMACEUTICAL PRODUCT COMPLAINT [None]
  - UPPER LIMB FRACTURE [None]
